FAERS Safety Report 25934505 (Version 2)
Quarter: 2025Q4

REPORT INFORMATION
  Report Type: Spontaneous
  Country: EU (occurrence: EU)
  Receive Date: 20251017
  Receipt Date: 20251125
  Transmission Date: 20260117
  Serious: Yes (Disabling)
  Sender: ARGENX BVBA
  Company Number: EU-ARGENX-2025-ARGX-BE013328

PATIENT

DRUGS (1)
  1. EFGARTIGIMOD ALFA [Suspect]
     Active Substance: EFGARTIGIMOD ALFA
     Indication: Chronic inflammatory demyelinating polyradiculoneuropathy
     Dosage: UNK, 1/WEEK
     Route: 058
     Dates: start: 20250922

REACTIONS (3)
  - Ataxia [Recovering/Resolving]
  - Paraesthesia [Recovering/Resolving]
  - Injection site pain [Recovered/Resolved]

NARRATIVE: CASE EVENT DATE: 20250922
